FAERS Safety Report 9989083 (Version 2)
Quarter: 2014Q1

REPORT INFORMATION
  Report Type: Report from Study
  Country: US (occurrence: US)
  Receive Date: 20140310
  Receipt Date: 20140310
  Transmission Date: 20141002
  Serious: No
  Sender: FDA-Public Use
  Company Number: US-ABBVIE-12P-163-0956887-00

PATIENT
  Age: 23 Year
  Sex: Female
  Weight: 77.18 kg

DRUGS (10)
  1. HUMIRA [Suspect]
     Indication: PSORIASIS
     Dates: start: 20120607, end: 201210
  2. HUMIRA [Suspect]
     Dates: start: 201210, end: 201301
  3. HUMIRA [Suspect]
     Dates: start: 20130712
  4. VICODIN [Concomitant]
     Indication: BACK PAIN
     Dosage: 5/500 1-2 TABLETS
  5. VICODIN [Concomitant]
     Indication: NEPHROLITHIASIS
  6. PERCOCET [Concomitant]
     Indication: BACK PAIN
     Dosage: 10/650 1
  7. IBUPROFEN [Concomitant]
     Indication: BACK PAIN
  8. TACLONEX [Concomitant]
     Indication: PRODUCT USED FOR UNKNOWN INDICATION
  9. HYDROCORTISONE [Concomitant]
     Indication: PRODUCT USED FOR UNKNOWN INDICATION
  10. VITAMIN B12 [Concomitant]
     Dates: start: 201303

REACTIONS (13)
  - Muscle twitching [Not Recovered/Not Resolved]
  - Joint injury [Not Recovered/Not Resolved]
  - Muscle spasms [Not Recovered/Not Resolved]
  - Hypoaesthesia [Recovering/Resolving]
  - Paraesthesia [Recovering/Resolving]
  - Hypoaesthesia [Recovered/Resolved]
  - Paraesthesia [Recovered/Resolved]
  - Injection site pain [Not Recovered/Not Resolved]
  - Carpal tunnel syndrome [Unknown]
  - Psoriasis [Not Recovered/Not Resolved]
  - Vitamin B12 deficiency [Unknown]
  - Blood urine present [Not Recovered/Not Resolved]
  - Haematuria [Not Recovered/Not Resolved]
